FAERS Safety Report 10067585 (Version 2)
Quarter: 2014Q2

REPORT INFORMATION
  Report Type: Spontaneous
  Country: US (occurrence: None)
  Receive Date: 20140407
  Receipt Date: 20140418
  Transmission Date: 20141212
  Serious: Yes (Other)
  Sender: FDA-Public Use
  Company Number: 2014-US-003839

PATIENT
  Age: 8 Year
  Sex: Female

DRUGS (6)
  1. XYREM (SODIUM OXYBATE) ORAL SOLUTION, 500MG/ML [Suspect]
     Indication: SLEEP DISORDER
     Route: 048
     Dates: start: 201403, end: 201403
  2. LORATADINE (LORATADINE) [Concomitant]
  3. FLONASE (FLUTICASONE PROPIONATE) [Concomitant]
  4. RITALIN [Concomitant]
  5. MIRALAX (MACROGOL 3350) [Concomitant]
  6. FISH OIL (FISH OIL) [Concomitant]

REACTIONS (3)
  - Convulsion [None]
  - Off label use [None]
  - Cardio-respiratory arrest [None]
